FAERS Safety Report 4690705-X (Version None)
Quarter: 2005Q2

REPORT INFORMATION
  Report Type: 
  Country: None (occurrence: None)
  Receive Date: 20050613
  Receipt Date: 20050531
  Transmission Date: 20051028
  Serious: Yes (Hospitalization)
  Sender: FDA-Public Use
  Company Number: 214484

PATIENT
  Age: 76 Year
  Sex: Male
  Weight: 63.3 kg

DRUGS (8)
  1. MABTHERA             (RITUXIMAB) [Suspect]
     Indication: NON-HODGKIN'S LYMPHOMA
     Dosage: INTRAVENOUS
     Route: 042
     Dates: start: 20040611
  2. CICLOFOSFAMIDA (CYCLOPHOSPHAMIDE) [Concomitant]
  3. DOXORUBICIN HYDROCHLORIDE [Concomitant]
  4. VINCRISTINE [Concomitant]
  5. PREDNISONE (PREDNISONE) [Concomitant]
  6. SALICYLIC ACID (SALICYLIC ACID) [Concomitant]
  7. ATENOLOL [Concomitant]
  8. FINASTERIDE [Concomitant]

REACTIONS (8)
  - ANAPHYLACTIC REACTION [None]
  - AURICULAR SWELLING [None]
  - BLOOD GLUCOSE INCREASED [None]
  - BLOOD SODIUM DECREASED [None]
  - BLOOD UREA INCREASED [None]
  - HAEMATOCRIT DECREASED [None]
  - INFUSION RELATED REACTION [None]
  - PLATELET COUNT DECREASED [None]
